FAERS Safety Report 15970972 (Version 4)
Quarter: 2019Q2

REPORT INFORMATION
  Report Type: Spontaneous
  Country: US (occurrence: US)
  Receive Date: 20190215
  Receipt Date: 20190402
  Transmission Date: 20190711
  Serious: No
  Sender: FDA-Public Use
  Company Number: US-B.I. PHARMACEUTICALS,INC./RIDGEFIELD-2019-BI-005331

PATIENT
  Sex: Female

DRUGS (2)
  1. JARDIANCE [Suspect]
     Active Substance: EMPAGLIFLOZIN
     Indication: TYPE 2 DIABETES MELLITUS
     Dosage: 3 JARDIANCE 25MG SAMPLES PACKETS FOR 3 WEEKS TAKING ONE TABLET PER DAY IN THE MORNING
     Route: 065
     Dates: start: 201901
  2. METFORMIN [Concomitant]
     Active Substance: METFORMIN HYDROCHLORIDE
     Indication: PRODUCT USED FOR UNKNOWN INDICATION
     Dosage: METFORMIN 500MG TAKEN AS 2 PILLS BID
     Route: 065

REACTIONS (3)
  - Thirst [Recovered/Resolved]
  - Drug ineffective [Unknown]
  - Pollakiuria [Recovered/Resolved]
